FAERS Safety Report 25623761 (Version 1)
Quarter: 2025Q3

REPORT INFORMATION
  Report Type: Spontaneous
  Country: JP (occurrence: JP)
  Receive Date: 20250730
  Receipt Date: 20250730
  Transmission Date: 20251020
  Serious: Yes (Hospitalization, Other)
  Sender: PFIZER
  Company Number: JP-PFIZER INC-PV202500091011

PATIENT
  Age: 82 Year
  Sex: Female
  Weight: 36.8 kg

DRUGS (9)
  1. RHEUMATREX [Suspect]
     Active Substance: METHOTREXATE SODIUM
     Indication: Rheumatoid arthritis
     Dosage: 6 CAPSULES ONCE A WEEK
     Route: 048
     Dates: start: 20181126, end: 20250626
  2. FOLIC ACID [Concomitant]
     Active Substance: FOLIC ACID
     Route: 048
     Dates: start: 20181126, end: 20250626
  3. POTASSIUM GLUCONATE [Concomitant]
     Active Substance: POTASSIUM GLUCONATE
     Route: 048
     Dates: start: 20250625, end: 20250710
  4. LEVOFLOXACIN [Concomitant]
     Active Substance: LEVOFLOXACIN
     Route: 048
     Dates: start: 20250624, end: 20250628
  5. KETOPROFEN [Concomitant]
     Active Substance: KETOPROFEN
     Route: 062
     Dates: start: 20201023, end: 20250626
  6. CELECOXIB [Concomitant]
     Active Substance: CELECOXIB
     Route: 048
     Dates: start: 20181126, end: 20250629
  7. LOSARHYD LD [Concomitant]
     Route: 048
     Dates: start: 20250509, end: 20250707
  8. REBAMIPIDE [Concomitant]
     Active Substance: REBAMIPIDE
     Route: 048
     Dates: start: 20190111, end: 20250724
  9. FUROSEMIDE [Concomitant]
     Active Substance: FUROSEMIDE
     Route: 042
     Dates: start: 20250625, end: 20250630

REACTIONS (3)
  - Pancytopenia [Recovered/Resolved]
  - Decreased appetite [Unknown]
  - Electrolyte imbalance [Recovered/Resolved]

NARRATIVE: CASE EVENT DATE: 20250601
